FAERS Safety Report 24620975 (Version 1)
Quarter: 2024Q4

REPORT INFORMATION
  Report Type: Spontaneous
  Country: JP (occurrence: JP)
  Receive Date: 20241114
  Receipt Date: 20241114
  Transmission Date: 20250114
  Serious: Yes (Hospitalization)
  Sender: DAIICHI
  Company Number: JP-DSJP-DS-2024-102886-JP

PATIENT
  Age: 80 Year
  Sex: Male

DRUGS (5)
  1. EDOXABAN TOSYLATE [Suspect]
     Active Substance: EDOXABAN TOSYLATE
     Indication: Atrial fibrillation
     Dosage: 30 MG, QD
     Route: 048
     Dates: start: 2019, end: 20241017
  2. PITAVASTATIN CALCIUM [Concomitant]
     Active Substance: PITAVASTATIN CALCIUM
     Indication: Product used for unknown indication
     Dosage: UNK
     Route: 048
  3. LAFUTIDINE [Concomitant]
     Active Substance: LAFUTIDINE
     Indication: Product used for unknown indication
     Dosage: UNK
     Route: 048
  4. ALENDRONATE [Concomitant]
     Active Substance: ALENDRONATE SODIUM
     Indication: Product used for unknown indication
     Dosage: UNK
     Route: 048
  5. CILOSTAZOL [Concomitant]
     Active Substance: CILOSTAZOL
     Indication: Product used for unknown indication
     Dosage: UNK
     Route: 048

REACTIONS (4)
  - Anaemia [Not Recovered/Not Resolved]
  - Platelet count decreased [Not Recovered/Not Resolved]
  - Fall [Not Recovered/Not Resolved]
  - Haemorrhage subcutaneous [Unknown]

NARRATIVE: CASE EVENT DATE: 20240101
